FAERS Safety Report 25743705 (Version 1)
Quarter: 2025Q3

REPORT INFORMATION
  Report Type: Spontaneous
  Country: US (occurrence: US)
  Receive Date: 20250831
  Receipt Date: 20250831
  Transmission Date: 20251020
  Serious: No
  Sender: SANOFI AVENTIS
  Company Number: US-SA-2025SA259425

PATIENT
  Sex: Male
  Weight: 118 kg

DRUGS (1)
  1. DUPIXENT [Suspect]
     Active Substance: DUPILUMAB
     Indication: Dermatitis atopic
     Dosage: 300 MG, QOW
     Route: 058

REACTIONS (6)
  - Pain of skin [Unknown]
  - Dermatitis atopic [Unknown]
  - Pruritus [Unknown]
  - Skin wound [Unknown]
  - Rebound effect [Unknown]
  - Product dose omission issue [Unknown]
